FAERS Safety Report 7950518-X (Version None)
Quarter: 2011Q4

REPORT INFORMATION
  Report Type: 
  Country: None (occurrence: None)
  Receive Date: 20111130
  Receipt Date: 20111116
  Transmission Date: 20120403
  Serious: Yes (Other)
  Sender: FDA-Public Use
  Company Number: US-ASTRAZENECA-2011SE52503

PATIENT
  Age: 85 Year
  Sex: Male

DRUGS (2)
  1. TRAMADOL HCL [Concomitant]
  2. CRESTOR [Suspect]
     Route: 048

REACTIONS (8)
  - ARTHRITIS [None]
  - SPINAL OSTEOARTHRITIS [None]
  - HEADACHE [None]
  - DIZZINESS [None]
  - COLON CANCER [None]
  - BACK PAIN [None]
  - BLADDER CANCER [None]
  - DIARRHOEA [None]
